FAERS Safety Report 4542259-6 (Version None)
Quarter: 2004Q4

REPORT INFORMATION
  Report Type: 
  Country: None (occurrence: None)
  Receive Date: 20041227
  Receipt Date: 20041215
  Transmission Date: 20050328
  Serious: Yes (Other)
  Sender: FDA-Public Use
  Company Number: HQWYE044917DEC04

PATIENT
  Sex: Female

DRUGS (3)
  1. PREMPRO [Suspect]
     Dosage: ORAL
     Route: 048
  2. PONDIMIN [Suspect]
     Indication: WEIGHT LOSS DIET
  3. REDUX [Suspect]
     Indication: WEIGHT LOSS DIET

REACTIONS (2)
  - CARDIAC VALVE DISEASE [None]
  - HEART INJURY [None]
